FAERS Safety Report 11432954 (Version 2)
Quarter: 2017Q2

REPORT INFORMATION
  Report Type: Report from Study
  Country: US (occurrence: US)
  Receive Date: 20150828
  Receipt Date: 20170404
  Transmission Date: 20170829
  Serious: Yes (Hospitalization)
  Sender: FDA-Public Use
  Company Number: PHEH2012US007459

PATIENT
  Age: 7 Year
  Sex: Male
  Weight: 36.74 kg

DRUGS (11)
  1. AFINITOR [Interacting]
     Active Substance: EVEROLIMUS
     Dosage: 2.5 MG, QD
     Route: 048
  2. AFINITOR [Interacting]
     Active Substance: EVEROLIMUS
     Dosage: UNK, UNK
     Route: 048
     Dates: start: 201504, end: 20150819
  3. LEXAPRO [Concomitant]
     Active Substance: ESCITALOPRAM OXALATE
     Indication: ANXIETY
     Dosage: 50 MG, QD
     Route: 065
  4. AFINITOR [Interacting]
     Active Substance: EVEROLIMUS
     Dosage: 2.5 MG, QD
     Route: 048
     Dates: start: 20130403
  5. AFINITOR [Interacting]
     Active Substance: EVEROLIMUS
     Dosage: 7.5 MG, QD
     Route: 048
  6. TEGRETOL [Interacting]
     Active Substance: CARBAMAZEPINE
     Indication: PRODUCT USED FOR UNKNOWN INDICATION
     Route: 065
  7. SEROQUEL [Concomitant]
     Active Substance: QUETIAPINE FUMARATE
     Indication: PRODUCT USED FOR UNKNOWN INDICATION
     Dosage: UNK
     Route: 065
  8. AFINITOR [Interacting]
     Active Substance: EVEROLIMUS
     Indication: ASTROCYTOMA, LOW GRADE
     Dosage: 5 MG, QD
     Route: 048
  9. LEXAPRO [Concomitant]
     Active Substance: ESCITALOPRAM OXALATE
     Indication: EMOTIONAL DISORDER
  10. AFINITOR [Suspect]
     Active Substance: EVEROLIMUS
     Indication: GANGLIOGLIOMA
     Dosage: 2.5 MG, QD
     Route: 048
     Dates: start: 20120224
  11. CARBAMAZEPINE. [Concomitant]
     Active Substance: CARBAMAZEPINE
     Indication: PRODUCT USED FOR UNKNOWN INDICATION
     Route: 065

REACTIONS (15)
  - Lethargy [Recovered/Resolved]
  - Vomiting [Recovered/Resolved]
  - Abnormal behaviour [Unknown]
  - Seizure [Recovering/Resolving]
  - Drug interaction [Unknown]
  - Diarrhoea [Recovered/Resolved]
  - Stomatitis [Unknown]
  - Malaise [Unknown]
  - Drug level decreased [Recovered/Resolved]
  - Ear infection [Unknown]
  - Pyrexia [Unknown]
  - Gastroenteritis viral [Recovered/Resolved]
  - Somnolence [Recovered/Resolved]
  - Diarrhoea [Not Recovered/Not Resolved]
  - Drug level decreased [Unknown]

NARRATIVE: CASE EVENT DATE: 20120806
